FAERS Safety Report 6779516-9 (Version None)
Quarter: 2010Q2

REPORT INFORMATION
  Report Type: 
  Country: None (occurrence: None)
  Receive Date: 20100618
  Receipt Date: 20100614
  Transmission Date: 20101027
  Serious: Yes (Hospitalization)
  Sender: FDA-Public Use
  Company Number: DE-B.I. PHARMACEUTICALS,INC./RIDGEFIELD-2010-DE-03268DE

PATIENT
  Age: 57 Year
  Sex: Female
  Weight: 74 kg

DRUGS (11)
  1. SPIRIVA [Suspect]
     Indication: CHRONIC OBSTRUCTIVE PULMONARY DISEASE
     Route: 055
     Dates: start: 20100401
  2. PREDNISONE TAB [Concomitant]
     Indication: CHRONIC OBSTRUCTIVE PULMONARY DISEASE
  3. PREDNISONE TAB [Concomitant]
     Indication: ASTHMA
  4. TORSEMIDE [Concomitant]
     Indication: CARDIAC FAILURE
  5. AZATHIODURA [Concomitant]
     Indication: FIBROSIS
  6. OMEP [Concomitant]
     Indication: GASTRIC ULCER
  7. SHORT ACTING BETA-AGONISTS [Concomitant]
  8. LONG ACTING BETA-AGONISTS [Concomitant]
  9. CORTICOSTEROIDS [Concomitant]
  10. THEOPHYLLINE [Concomitant]
  11. OXYGEN [Concomitant]

REACTIONS (1)
  - HOSPITALISATION [None]
